FAERS Safety Report 8263701-3 (Version None)
Quarter: 2012Q2

REPORT INFORMATION
  Report Type: 
  Country: None (occurrence: None)
  Receive Date: 20120405
  Receipt Date: 20120321
  Transmission Date: 20120825
  Serious: Yes (Other)
  Sender: FDA-Public Use
  Company Number: JP-ROCHE-1054137

PATIENT
  Sex: Male

DRUGS (5)
  1. LUCENTIS [Suspect]
     Indication: AGE-RELATED MACULAR DEGENERATION
     Route: 031
     Dates: start: 20111011, end: 20111012
  2. LUCENTIS [Suspect]
     Route: 031
     Dates: start: 20111118, end: 20111119
  3. LUCENTIS [Suspect]
     Route: 031
  4. VISUDYNE [Suspect]
     Indication: AGE-RELATED MACULAR DEGENERATION
     Route: 042
  5. LUCENTIS [Suspect]
     Route: 031
     Dates: start: 20111216, end: 20111217

REACTIONS (2)
  - RETINAL VASCULAR THROMBOSIS [None]
  - AGE-RELATED MACULAR DEGENERATION [None]
